FAERS Safety Report 6015354-2 (Version None)
Quarter: 2008Q4

REPORT INFORMATION
  Report Type: 
  Country: None (occurrence: None)
  Receive Date: 20081222
  Receipt Date: 20081217
  Transmission Date: 20090506
  Serious: Yes (Hospitalization)
  Sender: FDA-Public Use
  Company Number: DE-BRISTOL-MYERS SQUIBB COMPANY-14363592

PATIENT
  Age: 31 Year
  Sex: Male
  Weight: 79 kg

DRUGS (2)
  1. ABATACEPT [Suspect]
     Indication: ANKYLOSING SPONDYLITIS
     Route: 042
     Dates: start: 20080722
  2. CELECOXIB [Concomitant]
     Route: 048
     Dates: start: 20080624, end: 20081006

REACTIONS (2)
  - ABDOMINAL PAIN [None]
  - GASTROENTERITIS [None]
